FAERS Safety Report 9727518 (Version 1)
Quarter: 2013Q4

REPORT INFORMATION
  Report Type: Spontaneous
  Country: US (occurrence: US)
  Receive Date: 20131203
  Receipt Date: 20131203
  Transmission Date: 20140711
  Serious: No
  Sender: FDA-Public Use
  Company Number: US-GILEAD-2008-0018486

PATIENT
  Sex: Male

DRUGS (5)
  1. VIREAD [Suspect]
     Indication: HIV INFECTION
  2. KALETRA [Concomitant]
     Indication: HIV INFECTION
  3. DIDANOSINE [Concomitant]
     Indication: HIV INFECTION
  4. PERCOCET [Concomitant]
  5. XANAX [Concomitant]

REACTIONS (1)
  - Drug interaction [Unknown]
